FAERS Safety Report 7830661-6 (Version None)
Quarter: 2011Q4

REPORT INFORMATION
  Report Type: 
  Country: None (occurrence: None)
  Receive Date: 20111021
  Receipt Date: 20111014
  Transmission Date: 20120403
  Serious: Yes (Other)
  Sender: FDA-Public Use
  Company Number: HU-PFIZER INC-2011143737

PATIENT
  Age: 66 Year
  Sex: Female
  Weight: 68 kg

DRUGS (6)
  1. ATORVASTATIN CALCIUM [Suspect]
     Indication: BLOOD CHOLESTEROL INCREASED
     Dosage: 20 MG, 1X/DAY
     Dates: start: 20110101, end: 20110201
  2. ENALAPRIL MALEATE [Concomitant]
     Dosage: UNK
     Dates: start: 20010101
  3. ENALAPRIL MALEATE AND HYDROCHLOROTHIAZIDE [Concomitant]
     Dosage: UNK
     Dates: start: 20010101
  4. LACIPIL [Concomitant]
     Dosage: UNK
     Dates: start: 20010101
  5. CONCOR [Concomitant]
     Dosage: UNK
     Dates: start: 20010101
  6. TRENTAL ^ALBERT-ROUSSEL^ [Concomitant]
     Indication: EYE DISORDER
     Dosage: UNK
     Dates: start: 20080101

REACTIONS (3)
  - GAIT DISTURBANCE [None]
  - PAIN IN EXTREMITY [None]
  - DISCOMFORT [None]
